FAERS Safety Report 5893235-2 (Version None)
Quarter: 2008Q3

REPORT INFORMATION
  Report Type: 
  Country: None (occurrence: None)
  Receive Date: 20080922
  Receipt Date: 20080922
  Transmission Date: 20090109
  Serious: Yes (Other)
  Sender: FDA-Public Use
  Company Number: None

PATIENT
  Age: 52 Year
  Sex: Female
  Weight: 73.9363 kg

DRUGS (2)
  1. ABILIFY [Suspect]
     Indication: BIPOLAR I DISORDER
     Dosage: 10 MG 1 DAILY PO
     Route: 048
     Dates: start: 20050212, end: 20061206
  2. ABILIFY [Suspect]
     Dosage: 5 MG 1 DAILY PO
     Route: 048
     Dates: start: 20061206, end: 20070623

REACTIONS (4)
  - AKATHISIA [None]
  - ANGER [None]
  - ANXIETY [None]
  - TARDIVE DYSKINESIA [None]
